FAERS Safety Report 7062316-2 (Version None)
Quarter: 2010Q4

REPORT INFORMATION
  Report Type: 
  Country: None (occurrence: None)
  Receive Date: 20101026
  Receipt Date: 20101020
  Transmission Date: 20110411
  Serious: Yes (Death, Life-Threatening, Hospitalization)
  Sender: FDA-Public Use
  Company Number: SE-B.I. PHARMACEUTICALS,INC./RIDGEFIELD-2010-DE-04690DE

PATIENT
  Sex: Female
  Weight: 62 kg

DRUGS (13)
  1. DABIGATRAN [Suspect]
     Indication: CEREBROVASCULAR ACCIDENT PROPHYLAXIS
     Route: 048
     Dates: start: 20090216, end: 20100804
  2. DABIGATRAN [Suspect]
     Indication: ATRIAL FIBRILLATION
  3. POSTTREATMENT (DABIGATRAN) [Suspect]
     Indication: CEREBROVASCULAR ACCIDENT PROPHYLAXIS
     Route: 048
     Dates: start: 20090216, end: 20100804
  4. POSTTREATMENT (DABIGATRAN) [Suspect]
     Indication: ATRIAL FIBRILLATION
  5. OMEPRAZOLE [Concomitant]
     Indication: GASTRITIS PROPHYLAXIS
     Route: 048
     Dates: end: 20100801
  6. METFORMIN [Concomitant]
     Indication: DIABETES MELLITUS
     Dosage: 1500 MG
     Route: 048
     Dates: end: 20100801
  7. DIGOXIN [Concomitant]
     Indication: ATRIAL FIBRILLATION
     Route: 048
     Dates: end: 20100801
  8. ATENOLOL [Concomitant]
     Indication: HYPERTENSION
     Route: 048
     Dates: end: 20100801
  9. FELODIPINE [Concomitant]
     Indication: HYPERTENSION
     Route: 048
     Dates: end: 20100801
  10. ENALAPRIL COMP [Concomitant]
     Indication: HYPERTENSION
     Dosage: STRENGTH: 20/12.5 MG
     Route: 048
     Dates: end: 20100801
  11. SIMVASTATIN [Concomitant]
     Indication: HYPERLIPIDAEMIA
     Route: 048
     Dates: end: 20100801
  12. LEVOTHYROXINE SODIUM [Concomitant]
     Indication: HYPOTHYROIDISM
     Dosage: STRENGTH: 150/125 MCG
     Route: 048
     Dates: end: 20100801
  13. ASPIRIN [Concomitant]
     Indication: PROPHYLAXIS
     Route: 048
     Dates: start: 20090701, end: 20100801

REACTIONS (2)
  - CEREBROVASCULAR ACCIDENT [None]
  - MYOCARDIAL INFARCTION [None]
